FAERS Safety Report 15729158 (Version 1)
Quarter: 2018Q4

REPORT INFORMATION
  Report Type: Spontaneous
  Country: US (occurrence: US)
  Receive Date: 20181215
  Receipt Date: 20181215
  Transmission Date: 20190205
  Serious: Yes (Other)
  Sender: FDA-Public Use
  Company Number: None

PATIENT
  Age: 48 Year
  Sex: Female
  Weight: 65.25 kg

DRUGS (1)
  1. ACTEMRA [Suspect]
     Active Substance: TOCILIZUMAB
     Dosage: ?          OTHER FREQUENCY:EVERY 28 DAYS;?
     Route: 042

REACTIONS (10)
  - Hypoaesthesia [None]
  - Dysarthria [None]
  - Hypoaesthesia oral [None]
  - Headache [None]
  - Paraesthesia oral [None]
  - Neck pain [None]
  - Aphasia [None]
  - Feeling cold [None]
  - Musculoskeletal pain [None]
  - Pain [None]

NARRATIVE: CASE EVENT DATE: 20181210
